FAERS Safety Report 18330930 (Version 1)
Quarter: 2020Q3

REPORT INFORMATION
  Report Type: Spontaneous
  Country: DE (occurrence: DE)
  Receive Date: 20200930
  Receipt Date: 20200930
  Transmission Date: 20201103
  Serious: Yes (Other)
  Sender: FDA-Public Use
  Company Number: NVSC2020DE243211

PATIENT
  Age: 70 Year
  Sex: Male
  Weight: 102 kg

DRUGS (3)
  1. ELIQUIS [Interacting]
     Active Substance: APIXABAN
     Indication: CEREBROVASCULAR ACCIDENT PROPHYLAXIS
     Dosage: 10 MG, QD (5 MILLIGRAM, BID)
     Route: 065
     Dates: start: 20200820
  2. AMIODARONE [Suspect]
     Active Substance: AMIODARONE
     Indication: TACHYARRHYTHMIA
     Dosage: UNK
     Route: 065
  3. BISOPROLOL [Suspect]
     Active Substance: BISOPROLOL
     Indication: ATRIAL FIBRILLATION
     Dosage: 5 DF, QD
     Route: 048

REACTIONS (5)
  - Aortic thrombosis [Recovered/Resolved]
  - Renal impairment [Unknown]
  - Drug interaction [Unknown]
  - Pulmonary venous thrombosis [Unknown]
  - Drug ineffective [Unknown]
